FAERS Safety Report 22640924 (Version 2)
Quarter: 2025Q2

REPORT INFORMATION
  Report Type: Report from Study
  Country: US (occurrence: US)
  Receive Date: 20230626
  Receipt Date: 20250507
  Transmission Date: 20250716
  Serious: Yes (Death)
  Sender: ROCHE
  Company Number: US-ROCHE-3375165

PATIENT
  Age: 76 Year
  Sex: Male
  Weight: 105.69 kg

DRUGS (30)
  1. ESBRIET [Suspect]
     Active Substance: PIRFENIDONE
     Indication: Idiopathic pulmonary fibrosis
     Dosage: TAKE 1 TABLET BY MOUTH 3 TIMES A DAY WITH MEALS FOR 7 DAYS. THEN TAKE 2 TABLET BY MOUTH 3 TIMES, THE
     Route: 048
  2. TYLENOL [Concomitant]
     Active Substance: ACETAMINOPHEN
  3. ASPIRIN [Concomitant]
     Active Substance: ASPIRIN
  4. LOVENOX [Concomitant]
     Active Substance: ENOXAPARIN SODIUM
  5. LEXAPRO [Concomitant]
     Active Substance: ESCITALOPRAM OXALATE
  6. LASIX [Concomitant]
     Active Substance: FUROSEMIDE
  7. APRESOLINE HYDROCHLORIDE [Concomitant]
     Active Substance: HYDRALAZINE HYDROCHLORIDE
  8. APRESOLINE HYDROCHLORIDE [Concomitant]
     Active Substance: HYDRALAZINE HYDROCHLORIDE
  9. PLAVIX [Concomitant]
     Active Substance: CLOPIDOGREL BISULFATE
  10. DEXTROSE [Concomitant]
     Active Substance: DEXTROSE MONOHYDRATE
  11. LANTUS [Concomitant]
     Active Substance: INSULIN GLARGINE
  12. HUMALOG [Concomitant]
     Active Substance: INSULIN LISPRO
  13. HUMALOG [Concomitant]
     Active Substance: INSULIN LISPRO
  14. DUONEB [Concomitant]
     Active Substance: ALBUTEROL SULFATE\IPRATROPIUM BROMIDE
  15. ISORDIL [Concomitant]
     Active Substance: ISOSORBIDE DINITRATE
  16. MELATONIN [Concomitant]
     Active Substance: MELATONIN
  17. TOPROL XL [Concomitant]
     Active Substance: METOPROLOL SUCCINATE
  18. SINGULAIR [Concomitant]
     Active Substance: MONTELUKAST SODIUM
  19. ZOFRAN [Concomitant]
     Active Substance: ONDANSETRON HYDROCHLORIDE
  20. PROTONIX [Concomitant]
     Active Substance: PANTOPRAZOLE SODIUM
  21. MIRALAX [Concomitant]
     Active Substance: POLYETHYLENE GLYCOL 3350
  22. DELTASONE [Concomitant]
     Active Substance: PREDNISONE
  23. CRESTOR [Concomitant]
     Active Substance: ROSUVASTATIN CALCIUM
  24. NORVASC [Concomitant]
     Active Substance: AMLODIPINE BESYLATE
  25. OSCAL [Concomitant]
     Active Substance: CALCIUM CARBONATE
  26. MELATONIN [Concomitant]
     Active Substance: MELATONIN
  27. VITAMINS [Concomitant]
     Active Substance: VITAMINS
  28. NITROSTAT [Concomitant]
     Active Substance: NITROGLYCERIN
  29. ACTOS [Concomitant]
     Active Substance: PIOGLITAZONE HYDROCHLORIDE
  30. CRESTOR [Concomitant]
     Active Substance: ROSUVASTATIN CALCIUM

REACTIONS (1)
  - Death [Fatal]

NARRATIVE: CASE EVENT DATE: 20230621
